FAERS Safety Report 9231682 (Version 4)
Quarter: 2013Q2

REPORT INFORMATION
  Report Type: Report from Study
  Country: TH (occurrence: TH)
  Receive Date: 20130415
  Receipt Date: 20130530
  Transmission Date: 20140414
  Serious: Yes (Other)
  Sender: FDA-Public Use
  Company Number: TH-PFIZER INC-2013109687

PATIENT
  Age: 60 Year
  Sex: Female

DRUGS (4)
  1. FLUOROURACIL [Suspect]
     Indication: CHOLANGIOCARCINOMA
     Dosage: 600 MG/M2, CYCLIC
  2. MITOMYCIN [Suspect]
     Indication: CHOLANGIOCARCINOMA
     Dosage: 7 MG/M2, CYCLIC, 1XDAY
  3. DECOSTRIOL [Suspect]
     Indication: CHOLANGIOCARCINOMA
     Dosage: 12 UG, AM AND PM, ON 3 CONSECUTIVE DAYS WEEKLY, FOR 4 CONSECUTIVE WEEKS
  4. LEUCOVORIN [Suspect]
     Indication: CHOLANGIOCARCINOMA
     Dosage: 200 MG/M2, CYCLIC FOR 5 DAYS

REACTIONS (4)
  - Febrile neutropenia [Recovered/Resolved]
  - Hypokalaemia [Recovered/Resolved]
  - Stomatitis [Recovered/Resolved]
  - Hypercalcaemia [None]
